FAERS Safety Report 7199836-6 (Version None)
Quarter: 2010Q4

REPORT INFORMATION
  Report Type: 
  Country: None (occurrence: None)
  Receive Date: 20101228
  Receipt Date: 20101220
  Transmission Date: 20110411
  Serious: Yes (Other)
  Sender: FDA-Public Use
  Company Number: US-ROCHE-750037

PATIENT
  Age: 28 Year
  Sex: Female

DRUGS (4)
  1. MYCOPHENOLATE MOFETIL [Suspect]
     Indication: IMMUNOSUPPRESSION
     Route: 065
  2. MYCOPHENOLATE MOFETIL [Suspect]
     Dosage: DOSE INCREASED TO 1500 MG TWICE DAILY
     Route: 065
  3. PREDNISONE [Concomitant]
     Indication: IMMUNOSUPPRESSION
  4. TACROLIMUS [Concomitant]
     Indication: IMMUNOSUPPRESSION

REACTIONS (3)
  - COLITIS [None]
  - LEUKOPENIA [None]
  - TRANSPLANT REJECTION [None]
